FAERS Safety Report 5753824-2 (Version None)
Quarter: 2008Q2

REPORT INFORMATION
  Report Type: 
  Country: None (occurrence: None)
  Receive Date: 20080530
  Receipt Date: 20080523
  Transmission Date: 20081010
  Serious: No
  Sender: FDA-Public Use
  Company Number: US-MERCK-0803USA03495

PATIENT
  Age: 3 Year
  Sex: Male
  Weight: 24 kg

DRUGS (3)
  1. SINGULAIR [Suspect]
     Indication: ASTHMA
     Route: 048
     Dates: start: 20051014, end: 20080201
  2. SINGULAIR [Suspect]
     Indication: RHINITIS ALLERGIC
     Route: 048
     Dates: start: 20051014, end: 20080201
  3. ALBUTEROL [Concomitant]
     Indication: ASTHMA

REACTIONS (7)
  - ABNORMAL BEHAVIOUR [None]
  - AFFECT LABILITY [None]
  - ANGER [None]
  - FEELING ABNORMAL [None]
  - INSOMNIA [None]
  - MOOD SWINGS [None]
  - TREMOR [None]
